FAERS Safety Report 24025261 (Version 1)
Quarter: 2024Q2

REPORT INFORMATION
  Report Type: Report from Study
  Country: US (occurrence: US)
  Receive Date: 20240628
  Receipt Date: 20240628
  Transmission Date: 20240716
  Serious: No
  Sender: FDA-Public Use
  Company Number: US-ROCHE-3443323

PATIENT
  Age: 61 Year
  Sex: Female

DRUGS (1)
  1. ALECENSA [Suspect]
     Active Substance: ALECTINIB HYDROCHLORIDE
     Indication: Malignant connective tissue neoplasm
     Dosage: TAKE 4 CAPS PO BID
     Route: 048

REACTIONS (3)
  - Product prescribing error [Unknown]
  - Off label use [Unknown]
  - No adverse event [Unknown]
